FAERS Safety Report 12546452 (Version 1)
Quarter: 2016Q3

REPORT INFORMATION
  Report Type: Spontaneous
  Country: NZ (occurrence: NZ)
  Receive Date: 20160711
  Receipt Date: 20160711
  Transmission Date: 20161109
  Serious: Yes (Other)
  Sender: FDA-Public Use
  Company Number: NZ-PFIZER INC-2016331040

PATIENT
  Age: 36 Year
  Sex: Female

DRUGS (3)
  1. VINCRISTINE SULFATE. [Suspect]
     Active Substance: VINCRISTINE SULFATE
     Indication: EMBRYONAL RHABDOMYOSARCOMA
     Dosage: ADMINISTERED WITHIN 2 DAYS AND 21 DAYS BETWEEN EACH ROUND OFF 6 ROUNDS
  2. DOXORUBICIN HCL [Suspect]
     Active Substance: DOXORUBICIN HYDROCHLORIDE
     Indication: EMBRYONAL RHABDOMYOSARCOMA
     Dosage: ADMINISTERED WITHIN 2 DAYS AND 21 DAYS BETWEEN EACH ROUND OFF 6 ROUNDS
  3. CYCLOPHOSPHAMIDE. [Suspect]
     Active Substance: CYCLOPHOSPHAMIDE
     Indication: EMBRYONAL RHABDOMYOSARCOMA
     Dosage: ADMINISTERED WITHIN 2 DAYS AND 21 DAYS BETWEEN EACH ROUND OFF 6 ROUNDS

REACTIONS (2)
  - Neutropenia [Recovered/Resolved]
  - Memory impairment [Recovered/Resolved]
